FAERS Safety Report 7755248-5 (Version None)
Quarter: 2011Q3

REPORT INFORMATION
  Report Type: 
  Country: None (occurrence: None)
  Receive Date: 20110914
  Receipt Date: 20110830
  Transmission Date: 20111222
  Serious: Yes (Other)
  Sender: FDA-Public Use
  Company Number: DE-006118

PATIENT
  Sex: Male

DRUGS (2)
  1. FIRMAGON [Suspect]
     Indication: PROSTATE CANCER
     Dosage: 240 1X SUBCUTANEOUS, 80 MG 1X/MONTH SUBCUTANEOUS
     Route: 058
     Dates: start: 20110708, end: 20110708
  2. FIRMAGON [Suspect]
     Indication: PROSTATE CANCER
     Dosage: 240 1X SUBCUTANEOUS, 80 MG 1X/MONTH SUBCUTANEOUS
     Route: 058
     Dates: start: 20110816

REACTIONS (5)
  - MUSCLE SPASMS [None]
  - MONOPLEGIA [None]
  - ANTEROGRADE AMNESIA [None]
  - INJECTION SITE PAIN [None]
  - ALTERED STATE OF CONSCIOUSNESS [None]
